FAERS Safety Report 15053121 (Version 9)
Quarter: 2022Q4

REPORT INFORMATION
  Report Type: Spontaneous
  Country: US (occurrence: US)
  Receive Date: 20180622
  Receipt Date: 20221214
  Transmission Date: 20230112
  Serious: Yes (Hospitalization, Other)
  Sender: FDA-Public Use
  Company Number: US-PFIZER INC-2018247571

PATIENT
  Age: 54 Year
  Sex: Male

DRUGS (2)
  1. XELJANZ XR [Suspect]
     Active Substance: TOFACITINIB CITRATE
     Indication: Rheumatoid arthritis
     Dosage: 11 MG
  2. XELJANZ XR [Suspect]
     Active Substance: TOFACITINIB CITRATE
     Dosage: 11 MG, 1X/DAY
     Route: 048
     Dates: start: 2019

REACTIONS (9)
  - Pneumonia [Unknown]
  - Product dose omission issue [Unknown]
  - Product dose omission in error [Unknown]
  - Weight decreased [Unknown]
  - Malaise [Unknown]
  - Illness [Unknown]
  - Pyrexia [Not Recovered/Not Resolved]
  - Dysphonia [Unknown]
  - Viral infection [Not Recovered/Not Resolved]
